FAERS Safety Report 6209300-6 (Version None)
Quarter: 2009Q2

REPORT INFORMATION
  Report Type: 
  Country: None (occurrence: None)
  Receive Date: 20090529
  Receipt Date: 20090524
  Transmission Date: 20091009
  Serious: Yes (Other)
  Sender: FDA-Public Use
  Company Number: US-AMGEN-QUU348540

PATIENT
  Sex: Female

DRUGS (1)
  1. ENBREL [Suspect]
     Indication: PSORIASIS
     Route: 058
     Dates: start: 20090428

REACTIONS (5)
  - DIZZINESS [None]
  - DYSPHAGIA [None]
  - HEADACHE [None]
  - PALPITATIONS [None]
  - VISION BLURRED [None]
